FAERS Safety Report 9087531 (Version 1)
Quarter: 2013Q1

REPORT INFORMATION
  Report Type: Spontaneous
  Country: US (occurrence: US)
  Receive Date: 20130201
  Receipt Date: 20130201
  Transmission Date: 20140127
  Serious: No
  Sender: FDA-Public Use
  Company Number: US-PFIZER INC-2013043234

PATIENT
  Age: 61 Year
  Sex: Female
  Weight: 108.84 kg

DRUGS (4)
  1. NEURONTIN [Suspect]
     Indication: NEURALGIA
     Dosage: 300 MG, UNK
     Dates: start: 20080326, end: 20080327
  2. ALPRAZOLAM [Concomitant]
     Dosage: 0.5 MG, UNK
  3. TIZANIDINE [Concomitant]
     Dosage: 2 MG, 1X/DAY
  4. AMBIEN [Concomitant]
     Dosage: UNK

REACTIONS (1)
  - Anxiety [Unknown]
